FAERS Safety Report 8786022 (Version 2)
Quarter: 2012Q4

REPORT INFORMATION
  Report Type: 
  Country: GB (occurrence: GB)
  Receive Date: 20120914
  Receipt Date: 20121018
  Transmission Date: 20130627
  Serious: Yes (Life-Threatening, Other)
  Sender: FDA-Public Use
  Company Number: GB-BAXTER-2012BAX016105

PATIENT
  Age: 15 Year
  Sex: Female
  Weight: 50 kg

DRUGS (10)
  1. KIOVIG [Suspect]
     Indication: TOXIC SHOCK SYNDROME
     Route: 042
     Dates: start: 20120823, end: 20120823
  2. KIOVIG [Suspect]
     Indication: INTENTIONAL USE FOR UNLABELED INDICATION
  3. LINEZOLID [Concomitant]
     Indication: ANTIBIOTIC THERAPY
     Route: 065
  4. MEROPENEM [Concomitant]
     Indication: ANTIBIOTIC THERAPY
     Route: 065
  5. OMEPRAZOLE [Concomitant]
     Indication: DRUG USE FOR UNKNOWN INDICATION
     Route: 042
  6. TEICOPLANIN [Concomitant]
     Indication: ANTIBIOTIC THERAPY
     Route: 065
  7. HYDROCORTISONE [Concomitant]
     Indication: HIGH TEMPERATURE
     Route: 042
  8. HYDROCORTISONE [Concomitant]
     Indication: HYPERTENSION MALIGNANT
     Route: 042
  9. HYDROCORTISONE [Concomitant]
     Indication: RIGORS
     Dosage: UNKNOWN
     Route: 042
  10. HYDROCORTISONE [Concomitant]
     Indication: HEART RATE INCREASED

REACTIONS (7)
  - Feeling cold [Unknown]
  - Malignant hypertension [Recovered/Resolved]
  - Heart rate increased [Unknown]
  - Pyrexia [Unknown]
  - Chills [Unknown]
  - Agitation [Unknown]
  - Emotional distress [Unknown]
